FAERS Safety Report 16962138 (Version 1)
Quarter: 2019Q4

REPORT INFORMATION
  Report Type: Spontaneous
  Country: US (occurrence: US)
  Receive Date: 20191024
  Receipt Date: 20191024
  Transmission Date: 20200122
  Serious: No
  Sender: FDA-Public Use
  Company Number: None

PATIENT
  Age: 33 Year
  Sex: Female
  Weight: 49.5 kg

DRUGS (5)
  1. ALBUTEROL. [Concomitant]
     Active Substance: ALBUTEROL
  2. RANITIDINE. [Concomitant]
     Active Substance: RANITIDINE
  3. LORATADINE. [Concomitant]
     Active Substance: LORATADINE
  4. MEFLOQUINE HYDROCHLORIDE USP [Suspect]
     Active Substance: MEFLOQUINE HYDROCHLORIDE
     Indication: MALARIA PROPHYLAXIS
     Dosage: ?          QUANTITY:1 TABLET(S);OTHER FREQUENCY:ONCE EVERY WEEK;?
     Route: 048
     Dates: start: 20190925, end: 20191023
  5. TYLENOL [Concomitant]
     Active Substance: ACETAMINOPHEN

REACTIONS (10)
  - Headache [None]
  - Depressed mood [None]
  - Tremor [None]
  - Irritability [None]
  - Heart rate increased [None]
  - Nausea [None]
  - Nervousness [None]
  - Feeling abnormal [None]
  - Abnormal dreams [None]
  - Dizziness [None]

NARRATIVE: CASE EVENT DATE: 20191024
